FAERS Safety Report 9735618 (Version 2)
Quarter: 2013Q4

REPORT INFORMATION
  Report Type: Spontaneous
  Country: JP (occurrence: JP)
  Receive Date: 20131206
  Receipt Date: 20131213
  Transmission Date: 20140711
  Serious: Yes (Other)
  Sender: FDA-Public Use
  Company Number: PHHY2013JP141515

PATIENT
  Sex: 0

DRUGS (2)
  1. ZOLEDRONIC ACID [Suspect]
     Indication: BREAST CANCER
  2. HORMONES [Suspect]
     Indication: BREAST CANCER

REACTIONS (2)
  - Osteonecrosis of jaw [Unknown]
  - Jaw disorder [Not Recovered/Not Resolved]
